FAERS Safety Report 17095792 (Version 2)
Quarter: 2019Q4

REPORT INFORMATION
  Report Type: Spontaneous
  Country: AU (occurrence: AU)
  Receive Date: 20191201
  Receipt Date: 20191204
  Transmission Date: 20200122
  Serious: Yes (Other)
  Sender: FDA-Public Use
  Company Number: AU-ALEXION PHARMACEUTICALS INC.-A201916689

PATIENT
  Age: 27 Year
  Sex: Female

DRUGS (1)
  1. SOLIRIS [Suspect]
     Active Substance: ECULIZUMAB
     Indication: PAROXYSMAL NOCTURNAL HAEMOGLOBINURIA
     Dosage: UNK
     Route: 065

REACTIONS (7)
  - Exposure during pregnancy [Recovered/Resolved]
  - Ascites [Unknown]
  - Abdominal pain [Unknown]
  - Cerebrovascular accident [Unknown]
  - Maternal exposure during breast feeding [Recovered/Resolved]
  - Portal vein thrombosis [Unknown]
  - Hepatomegaly [Unknown]
